FAERS Safety Report 6970497-1 (Version None)
Quarter: 2010Q3

REPORT INFORMATION
  Report Type: 
  Country: None (occurrence: None)
  Receive Date: 20100908
  Receipt Date: 20100826
  Transmission Date: 20110219
  Serious: Yes (Hospitalization, Other)
  Sender: FDA-Public Use
  Company Number: JP-ROCHE-708054

PATIENT
  Age: 1 Year
  Weight: 8.5 kg

DRUGS (2)
  1. ROCEPHIN [Suspect]
     Indication: BACTERAEMIA
     Route: 041
     Dates: start: 20100120, end: 20100122
  2. SOLITA-T3 [Concomitant]
     Route: 041
     Dates: start: 20100115, end: 20100122

REACTIONS (2)
  - ENDOTOXAEMIA [None]
  - ENDOTOXIC SHOCK [None]
